FAERS Safety Report 8156448-5 (Version None)
Quarter: 2012Q1

REPORT INFORMATION
  Report Type: 
  Country: None (occurrence: None)
  Receive Date: 20120222
  Receipt Date: 20120216
  Transmission Date: 20120608
  Serious: Yes (Death)
  Sender: FDA-Public Use
  Company Number: CA-CELGENEUS-028-21880-12021932

PATIENT
  Sex: Female

DRUGS (11)
  1. PREDNISONE TAB [Concomitant]
     Route: 065
  2. PANTOPRAZOLE [Concomitant]
     Route: 065
  3. AMLODIPINE [Concomitant]
     Route: 065
  4. VITAMIN B6 [Concomitant]
     Route: 065
  5. NITRO-DUR [Concomitant]
     Route: 065
  6. CALCIUM - VITAMIN D [Concomitant]
     Route: 065
  7. REVLIMID [Suspect]
     Dosage: 10 MILLIGRAM
     Route: 048
     Dates: start: 20110131, end: 20111101
  8. RIVA-K [Concomitant]
     Route: 065
  9. VITAMIN B-12 [Concomitant]
     Route: 065
  10. SYNTHROID [Concomitant]
     Route: 065
  11. EURO FOLIC [Concomitant]
     Route: 065

REACTIONS (1)
  - DEATH [None]
